FAERS Safety Report 18947689 (Version 1)
Quarter: 2021Q1

REPORT INFORMATION
  Report Type: Report from Study
  Country: US (occurrence: US)
  Receive Date: 20210226
  Receipt Date: 20210226
  Transmission Date: 20210420
  Serious: Yes (Other)
  Sender: FDA-Public Use
  Company Number: US-ASTRAZENECA-2021A081063

PATIENT
  Sex: Male

DRUGS (2)
  1. MOVANTIK [Suspect]
     Active Substance: NALOXEGOL OXALATE
     Route: 065
  2. SYMBICORT [Suspect]
     Active Substance: BUDESONIDE\FORMOTEROL FUMARATE DIHYDRATE
     Indication: MULTIPLE ALLERGIES
     Dosage: 160/4.5MCG
     Route: 055

REACTIONS (12)
  - Mobility decreased [Unknown]
  - Thinking abnormal [Unknown]
  - Cough [Unknown]
  - Autonomic dysreflexia [Unknown]
  - Gastrointestinal disorder [Unknown]
  - Immune system disorder [Unknown]
  - Bradycardia [Unknown]
  - Respiratory disorder [Unknown]
  - Sneezing [Unknown]
  - Vomiting [Unknown]
  - Multiple allergies [Not Recovered/Not Resolved]
  - Acute kidney injury [Recovering/Resolving]
